FAERS Safety Report 25963150 (Version 1)
Quarter: 2025Q4

REPORT INFORMATION
  Report Type: Spontaneous
  Country: AR (occurrence: AR)
  Receive Date: 20251027
  Receipt Date: 20251027
  Transmission Date: 20260117
  Serious: Yes (Death)
  Sender: INCYTE
  Company Number: AR-002147023-NVSC2025AR164349

PATIENT

DRUGS (1)
  1. RUXOLITINIB [Suspect]
     Active Substance: RUXOLITINIB
     Indication: Graft versus host disease
     Dosage: 5 MG, Q12H
     Route: 065

REACTIONS (1)
  - Pulmonary alveolar haemorrhage [Fatal]
